FAERS Safety Report 12865706 (Version 2)
Quarter: 2016Q4

REPORT INFORMATION
  Report Type: Spontaneous
  Country: EE (occurrence: EE)
  Receive Date: 20161020
  Receipt Date: 20161026
  Transmission Date: 20170207
  Serious: Yes (Death, Hospitalization, Other)
  Sender: FDA-Public Use
  Company Number: EE-PFIZER INC-2016488929

PATIENT
  Age: 47 Year
  Sex: Female

DRUGS (9)
  1. MEDROL [Suspect]
     Active Substance: METHYLPREDNISOLONE
     Indication: GRANULOMATOSIS WITH POLYANGIITIS
     Dosage: 4 MG, 3X/DAY
     Route: 048
  2. MONOZIDE [Concomitant]
     Indication: HYPERTENSION
     Dosage: 1 DF, 1X/DAY
     Route: 048
  3. CORINFAR RETARD [Concomitant]
     Indication: HYPERTENSION
     Dosage: 20 MG 2X/DAY
     Route: 048
  4. ALLOPURINOL. [Concomitant]
     Active Substance: ALLOPURINOL
     Indication: HYPERURICAEMIA
     Dosage: 150 MG 1X/DAY
     Route: 048
  5. ROSUVASTATIN. [Concomitant]
     Active Substance: ROSUVASTATIN
     Indication: HYPERCHOLESTEROLAEMIA
     Dosage: 10 MG 1X/DAY
     Route: 048
  6. MABTHERA [Suspect]
     Active Substance: RITUXIMAB
     Indication: GRANULOMATOSIS WITH POLYANGIITIS
     Dosage: 1000 MG, UNK, TOTAL 2 INFUSIONS
     Route: 042
     Dates: start: 20150317, end: 20150421
  7. MONOPRIL [Concomitant]
     Active Substance: FOSINOPRIL SODIUM
     Indication: HYPERTENSION
     Dosage: 20 MG, 1X/DAY
     Route: 048
  8. BETALOC ZOK [Concomitant]
     Active Substance: METOPROLOL SUCCINATE
     Indication: HYPERTENSION
     Dosage: 50 MG 2X/DAY
     Route: 048
  9. TREXAN [Suspect]
     Active Substance: METHOTREXATE SODIUM
     Indication: GRANULOMATOSIS WITH POLYANGIITIS
     Dosage: 7.5 MG, WEEKLY
     Route: 048
     Dates: start: 20131010, end: 20160522

REACTIONS (10)
  - Sepsis [Fatal]
  - Staphylococcal infection [Unknown]
  - Multiple organ dysfunction syndrome [Fatal]
  - Condition aggravated [Fatal]
  - Diverticulitis [Fatal]
  - Peritonitis [Fatal]
  - Enterococcal infection [Unknown]
  - Diverticulum [Unknown]
  - Diverticular perforation [Fatal]
  - Candida infection [Unknown]

NARRATIVE: CASE EVENT DATE: 201509
